FAERS Safety Report 8858810 (Version 2)
Quarter: 2012Q4

REPORT INFORMATION
  Report Type: 
  Country: IT (occurrence: IT)
  Receive Date: 20121024
  Receipt Date: 20121123
  Transmission Date: 20130627
  Serious: Yes (Death)
  Sender: FDA-Public Use
  Company Number: IT-JNJFOC-20121010890

PATIENT

DRUGS (7)
  1. DOXORUBICIN [Suspect]
     Indication: BONE SARCOMA
     Dosage: 360-450 mg/m2, infusion duration 8 hours (protocol IOR-OS1)
     Route: 042
  2. DOXORUBICIN HYDROCHLORIDE [Suspect]
     Indication: BONE SARCOMA
     Dosage: 360-450 mg/m2, infusion duration 8 hours (protocol IOR-OS1)
     Route: 042
  3. CISPLATIN [Suspect]
     Indication: BONE SARCOMA
     Dosage: 300-750 mg/m2 (protocol IOR-OS1)
     Route: 065
  4. METHOTREXATE [Suspect]
     Indication: BONE SARCOMA
     Dosage: 3750-37500 mg/m2 (protocol IOR-OS1)
     Route: 065
  5. IFOSFAMIDE [Suspect]
     Indication: BONE SARCOMA
     Dosage: (protocol IOR-OS2)
     Route: 065
  6. ETOPOSIDE [Suspect]
     Indication: BONE SARCOMA
     Dosage: (protocol IOR-OS2)
     Route: 065
  7. CISPLATIN [Suspect]
     Indication: BONE SARCOMA
     Dosage: (protocol IOR-OS2)
     Route: 013

REACTIONS (2)
  - Completed suicide [Fatal]
  - Off label use [Unknown]
